FAERS Safety Report 8508907-0 (Version None)
Quarter: 2012Q3

REPORT INFORMATION
  Report Type: 
  Country: None (occurrence: None)
  Receive Date: 20120713
  Receipt Date: 20120123
  Transmission Date: 20120928
  Serious: Yes (Death, Other)
  Sender: FDA-Public Use
  Company Number: JP-009507513-2011SP041748

PATIENT

DRUGS (14)
  1. REBETOL [Suspect]
     Dosage: 200MG400MG IN EVENING IN MORNING
     Route: 048
     Dates: start: 20100621, end: 20100720
  2. URSO 250 [Concomitant]
     Indication: HEPATITIS C
     Dosage: 600 MG, UNK
     Route: 048
     Dates: start: 20060906
  3. DEPAS [Concomitant]
     Indication: INSOMNIA
     Dosage: 0.5 MG, UNK
     Route: 048
     Dates: start: 20080910
  4. REBETOL [Suspect]
     Dosage: 200 MG, QD
     Route: 048
     Dates: start: 20100804, end: 20110518
  5. ADALAT CC [Concomitant]
     Route: 048
     Dates: start: 20080123
  6. REBETOL [Suspect]
     Dosage: 200 MG, BID
     Route: 048
     Dates: start: 20100721, end: 20100803
  7. URSO 250 [Concomitant]
  8. INTERFERON BETA NOS [Suspect]
     Dosage: 6 MILLION IU, QD
     Route: 041
     Dates: start: 20100706, end: 20100719
  9. INTERFERON BETA NOS [Suspect]
     Dosage: 6 MILLION IU, TIW
     Route: 041
     Dates: start: 20100721, end: 20110518
  10. INTERFERON BETA NOS [Suspect]
     Route: 041
     Dates: start: 20100706, end: 20100719
  11. ADALAT CC [Concomitant]
     Indication: HYPERTENSION
     Dosage: 40 MG, UNK
     Route: 048
     Dates: start: 20080123
  12. INTERFERON BETA NOS [Suspect]
     Route: 041
     Dates: start: 20100721, end: 20110518
  13. INTERFERON BETA NOS [Suspect]
     Indication: HEPATITIS C
     Dosage: 3 MILLION IU, BID
     Route: 041
     Dates: start: 20100621, end: 20100705
  14. INTERFERON BETA NOS [Suspect]
     Indication: HEPATITIS C
     Route: 041
     Dates: start: 20100621, end: 20100705

REACTIONS (8)
  - PYREXIA [None]
  - HAEMOGLOBIN DECREASED [None]
  - HAEMATOCRIT DECREASED [None]
  - PROTEINURIA [None]
  - RED BLOOD CELL COUNT DECREASED [None]
  - DEPRESSION [None]
  - HYPERKALAEMIA [None]
  - NEUTROPHIL COUNT DECREASED [None]
